FAERS Safety Report 10472502 (Version 1)
Quarter: 2014Q3

REPORT INFORMATION
  Report Type: Spontaneous
  Country: US (occurrence: None)
  Receive Date: 20140923
  Receipt Date: 20140923
  Transmission Date: 20150326
  Serious: Yes (Other)
  Sender: FDA-Public Use
  Company Number: None

PATIENT
  Age: 54 Year
  Sex: Male
  Weight: 95.26 kg

DRUGS (1)
  1. MOVIPREP [Suspect]
     Active Substance: ASCORBIC ACID\POLYETHYLENE GLYCOL 3350\POTASSIUM CHLORIDE\SODIUM ASCORBATE\SODIUM CHLORIDE\SODIUM SULFATE
     Indication: COLONOSCOPY
     Dosage: 240 ML EVERY 15 MIN; 16 DOSES
     Dates: start: 20140918, end: 20140919

REACTIONS (7)
  - Dizziness [None]
  - Vomiting [None]
  - Nausea [None]
  - Chills [None]
  - Tremor [None]
  - Cold sweat [None]
  - Abdominal pain [None]

NARRATIVE: CASE EVENT DATE: 20140918
